FAERS Safety Report 9022093 (Version 2)
Quarter: 2013Q1

REPORT INFORMATION
  Report Type: Spontaneous
  Country: JP (occurrence: JP)
  Receive Date: 20130118
  Receipt Date: 20130204
  Transmission Date: 20140127
  Serious: Yes (Hospitalization)
  Sender: FDA-Public Use
  Company Number: JP-GLAXOSMITHKLINE-B0858132A

PATIENT
  Age: 38 None
  Sex: Female
  Weight: 49 kg

DRUGS (9)
  1. SERETIDE [Suspect]
     Indication: ASTHMA
     Dosage: 500MCG TWICE PER DAY
     Route: 055
  2. PREDNISOLONE [Concomitant]
     Indication: ASTHMA
     Route: 065
  3. PREDNISOLONE [Concomitant]
     Indication: ASTHMA
     Route: 065
  4. THEOPHYLLINE [Concomitant]
     Indication: ASTHMA
     Dosage: 400MG TWICE PER DAY
     Route: 065
  5. MONTELUKAST SODIUM [Concomitant]
     Indication: ASTHMA
     Dosage: 10MG PER DAY
     Route: 048
  6. ASPIRIN [Concomitant]
     Dosage: 100MG PER DAY
     Route: 048
  7. XOLAIR [Concomitant]
     Route: 058
  8. XOLAIR [Concomitant]
     Route: 058
  9. CICLESONIDE [Concomitant]
     Dosage: 400MCG PER DAY
     Route: 055

REACTIONS (10)
  - Foetal hypokinesia [Unknown]
  - Caesarean section [Unknown]
  - Abortion [Unknown]
  - Stillbirth [Unknown]
  - Asthma [Unknown]
  - Premature labour [Recovered/Resolved]
  - Uterine contractions during pregnancy [Unknown]
  - Pre-eclampsia [Unknown]
  - Exposure during pregnancy [Unknown]
  - Live birth [Unknown]
